FAERS Safety Report 6090635-5 (Version None)
Quarter: 2009Q1

REPORT INFORMATION
  Report Type: 
  Country: None (occurrence: None)
  Receive Date: 20090224
  Receipt Date: 20090209
  Transmission Date: 20090719
  Serious: No
  Sender: FDA-Public Use
  Company Number: US-ABBOTT-09P-163-0497974-00

PATIENT
  Sex: Female
  Weight: 72.64 kg

DRUGS (4)
  1. SIMCOR [Suspect]
     Indication: BLOOD CHOLESTEROL INCREASED
     Route: 048
     Dates: start: 20080901, end: 20081001
  2. SIMCOR [Suspect]
     Dates: start: 20081001, end: 20090130
  3. BONIVA [Concomitant]
     Indication: DRUG USE FOR UNKNOWN INDICATION
  4. FISH OIL [Concomitant]
     Indication: DRUG USE FOR UNKNOWN INDICATION

REACTIONS (4)
  - BURNING SENSATION [None]
  - FLUSHING [None]
  - PARAESTHESIA [None]
  - PRURITUS GENERALISED [None]
